FAERS Safety Report 13088645 (Version 3)
Quarter: 2017Q1

REPORT INFORMATION
  Report Type: Spontaneous
  Country: ES (occurrence: ES)
  Receive Date: 20170105
  Receipt Date: 20170208
  Transmission Date: 20170428
  Serious: Yes (Other)
  Sender: FDA-Public Use
  Company Number: ES-CELGENEUS-ESP-2016126650

PATIENT
  Age: 46 Year
  Sex: Male
  Weight: 122 kg

DRUGS (5)
  1. OTEZLA [Suspect]
     Active Substance: APREMILAST
     Indication: PSORIASIS
     Dosage: 60MG
     Route: 048
     Dates: start: 20160518, end: 20160730
  2. RANITIDINE. [Concomitant]
     Active Substance: RANITIDINE
     Indication: GASTROOESOPHAGEAL REFLUX DISEASE
  3. RANITIDINE. [Concomitant]
     Active Substance: RANITIDINE
     Indication: BLOOD CHOLESTEROL
     Route: 048
     Dates: start: 20160330
  4. OMEPRAZOLE. [Concomitant]
     Active Substance: OMEPRAZOLE
     Indication: GASTROOESOPHAGEAL REFLUX DISEASE
     Route: 048
     Dates: start: 20160330
  5. SIMVASTATIN. [Concomitant]
     Active Substance: SIMVASTATIN
     Indication: HYPERCHOLESTEROLAEMIA
     Route: 065
     Dates: start: 20141021

REACTIONS (7)
  - Vomiting [Unknown]
  - Affective disorder [Recovered/Resolved]
  - Headache [Unknown]
  - Nausea [Unknown]
  - Amnesia [Recovered/Resolved]
  - Depression [Recovered/Resolved]
  - Drug ineffective [Unknown]

NARRATIVE: CASE EVENT DATE: 20160701
